FAERS Safety Report 22641714 (Version 1)
Quarter: 2023Q2

REPORT INFORMATION
  Report Type: Report from Study
  Country: IT (occurrence: IT)
  Receive Date: 20230626
  Receipt Date: 20230626
  Transmission Date: 20230722
  Serious: Yes (Hospitalization, Other)
  Sender: FDA-Public Use
  Company Number: None

PATIENT
  Age: 83 Year
  Sex: Male

DRUGS (8)
  1. MEDROL [Suspect]
     Active Substance: METHYLPREDNISOLONE
     Indication: Palliative care
     Dosage: 1 DF
     Route: 048
  2. CYCLOPHOSPHAMIDE [Suspect]
     Active Substance: CYCLOPHOSPHAMIDE
     Indication: Chemotherapy
     Dosage: 1 DF
     Route: 048
  3. PLAVIX [Suspect]
     Active Substance: CLOPIDOGREL BISULFATE
     Indication: Thrombosis prophylaxis
     Dosage: 1 DF, 1X/DAY
     Route: 048
  4. AMIODARONE [Concomitant]
     Active Substance: AMIODARONE
     Indication: Supraventricular tachycardia
     Dosage: 200 MG
     Route: 048
  5. ACYCLOVIR [Concomitant]
     Active Substance: ACYCLOVIR
     Indication: Antiviral prophylaxis
     Dosage: 800 MG
     Route: 048
  6. FILGRASTIM [Concomitant]
     Active Substance: FILGRASTIM
     Indication: Neutropenia
     Dosage: 1 VIAL, WEEKLY
     Route: 058
  7. SIMVASTATIN [Concomitant]
     Active Substance: SIMVASTATIN
     Indication: Hypercholesterolaemia
     Dosage: UNK
     Route: 048
  8. LAMIVUDINE [Concomitant]
     Active Substance: LAMIVUDINE
     Indication: Chronic hepatitis B
     Dosage: 100 MG, 1X/DAY
     Route: 048

REACTIONS (8)
  - Asthenia [Recovered/Resolved]
  - Thrombocytopenia [Recovering/Resolving]
  - Inflammation [Recovering/Resolving]
  - Febrile neutropenia [Recovered/Resolved]
  - Hypotension [Recovered/Resolved]
  - Hyperpyrexia [Recovered/Resolved]
  - Cough [Recovered/Resolved]
  - Chills [Recovered/Resolved]

NARRATIVE: CASE EVENT DATE: 20221109
